FAERS Safety Report 21748842 (Version 1)
Quarter: 2022Q4

REPORT INFORMATION
  Report Type: Spontaneous
  Country: CL (occurrence: CL)
  Receive Date: 20221219
  Receipt Date: 20221219
  Transmission Date: 20230112
  Serious: Yes (Death, Hospitalization, Other)
  Sender: FDA-Public Use
  Company Number: CL-MLMSERVICE-20221202-3963191-1

PATIENT
  Age: 4 Month
  Sex: Male

DRUGS (1)
  1. METHYLPREDNISOLONE [Suspect]
     Active Substance: METHYLPREDNISOLONE
     Indication: Interstitial lung disease
     Dosage: 10 MG/KG, 1X/DAY

REACTIONS (3)
  - Therapeutic response decreased [Fatal]
  - Disease progression [Fatal]
  - Hypertrophic cardiomyopathy [Unknown]
